FAERS Safety Report 7781232-1 (Version None)
Quarter: 2011Q3

REPORT INFORMATION
  Report Type: 
  Country: None (occurrence: None)
  Receive Date: 20110927
  Receipt Date: 20110926
  Transmission Date: 20111222
  Serious: Yes (Death)
  Sender: FDA-Public Use
  Company Number: US-UCBSA-042060

PATIENT
  Sex: Male
  Weight: 83.4 kg

DRUGS (1)
  1. ROTIGOTINE [Suspect]
     Indication: PARKINSON'S DISEASE
     Route: 062
     Dates: start: 20090106, end: 20110924

REACTIONS (1)
  - CARDIO-RESPIRATORY ARREST [None]
